FAERS Safety Report 7714934-3 (Version None)
Quarter: 2011Q3

REPORT INFORMATION
  Report Type: 
  Country: None (occurrence: None)
  Receive Date: 20110829
  Receipt Date: 20110818
  Transmission Date: 20111222
  Serious: Yes (Hospitalization)
  Sender: FDA-Public Use
  Company Number: JP-NAPPMUNDI-MAG-2011-0001594

PATIENT
  Sex: Female

DRUGS (10)
  1. OXYCODONE HCL [Suspect]
     Dosage: 100 MG, DAILY
     Route: 048
     Dates: start: 20110710, end: 20110710
  2. OXYCODONE HCL [Suspect]
     Indication: CANCER PAIN
     Dosage: 5 MG, DAILY
     Route: 048
     Dates: start: 20110707, end: 20110707
  3. FENTANYL [Concomitant]
     Dosage: 4.2 MG, DAILY
     Route: 062
     Dates: start: 20110707, end: 20110707
  4. REBAMIPIDE [Concomitant]
     Dosage: 3 DF, DAILY
     Route: 048
  5. FENTANYL [Concomitant]
     Indication: CANCER PAIN
     Dosage: 8.4 MG, DAILY
     Route: 062
     Dates: start: 20110704, end: 20110704
  6. PREDNISOLONE [Concomitant]
     Dosage: 15 MG, DAILY
     Route: 048
  7. OXYCODONE HCL [Suspect]
     Indication: CANCER PAIN
     Dosage: 60 MG, DAILY
     Route: 048
     Dates: start: 20110707, end: 20110709
  8. CONFATANIN [Concomitant]
     Dosage: 3 DF, DAILY
     Route: 048
  9. OXYCODONE HCL [Suspect]
     Dosage: 10 MG, DAILY
     Route: 048
     Dates: start: 20110709, end: 20110709
  10. OXYCODONE HCL [Suspect]
     Dosage: 15 MG, DAILY
     Route: 048
     Dates: start: 20110708, end: 20110708

REACTIONS (1)
  - DELIRIUM [None]
